FAERS Safety Report 4458134-1 (Version None)
Quarter: 2004Q3

REPORT INFORMATION
  Report Type: 
  Country: None (occurrence: None)
  Receive Date: 20040924
  Receipt Date: 20040811
  Transmission Date: 20050211
  Serious: Yes (Other)
  Sender: FDA-Public Use
  Company Number: AU-GLAXOSMITHKLINE-B0342962A

PATIENT
  Age: 71 Year
  Sex: Female
  Weight: 70 kg

DRUGS (6)
  1. SEREVENT [Suspect]
     Indication: ASTHMA
     Dosage: 50MCG TWICE PER DAY
     Route: 055
  2. VENTOLIN [Concomitant]
     Indication: ASTHMA
     Route: 055
  3. PULMICORT [Concomitant]
     Indication: ASTHMA
     Dosage: 400MG TWICE PER DAY
     Route: 055
     Dates: start: 19940601
  4. OMEPRAZOLE [Concomitant]
     Dosage: 20MG PER DAY
     Route: 048
     Dates: start: 19990501
  5. MOCLOBEMIDE [Concomitant]
     Indication: ANXIETY
     Dosage: 300MG PER DAY
     Route: 048
     Dates: start: 19940501
  6. ALPRAZOLAM [Concomitant]
     Indication: ANXIETY
     Dosage: 250MCG TWICE PER DAY
     Route: 048

REACTIONS (4)
  - ASTHMA [None]
  - DYSPNOEA [None]
  - FEELING ABNORMAL [None]
  - PHARMACEUTICAL PRODUCT COMPLAINT [None]
